FAERS Safety Report 25682161 (Version 1)
Quarter: 2025Q3

REPORT INFORMATION
  Report Type: Other
  Country: CA (occurrence: CA)
  Receive Date: 20250814
  Receipt Date: 20250814
  Transmission Date: 20251021
  Serious: Yes (Other)
  Sender: BIOCON
  Company Number: CA-BIOCON BIOLOGICS LIMITED-BBL2025004395

PATIENT

DRUGS (2)
  1. KIRSTY [Suspect]
     Active Substance: INSULIN ASPART-XJHZ
     Indication: Product used for unknown indication
     Dosage: 7 UNITS, TID, 3 EVERY 1 DAYS (SOLUTION SUBCUTANEOUS)
     Route: 065
  2. INSULIN ASPART [Suspect]
     Active Substance: INSULIN ASPART
     Indication: Type 1 diabetes mellitus
     Dosage: 7 UNITS, TID, 3 EVERY 1 DAYS (SOLUTION SUBCUTANEOUS)
     Route: 058

REACTIONS (1)
  - Rash pruritic [Not Recovered/Not Resolved]
